FAERS Safety Report 7609058-X (Version None)
Quarter: 2011Q3

REPORT INFORMATION
  Report Type: 
  Country: None (occurrence: None)
  Receive Date: 20110714
  Receipt Date: 20110711
  Transmission Date: 20111222
  Serious: Yes (Life-Threatening)
  Sender: FDA-Public Use
  Company Number: IT-CELGENEUS-083-21880-11071063

PATIENT
  Sex: Male
  Weight: 68 kg

DRUGS (8)
  1. TRANEX [Concomitant]
     Dosage: 1000 MILLIGRAM
     Route: 065
  2. ALLOPURINOL [Concomitant]
     Dosage: 300 MILLIGRAM
     Route: 065
  3. EPREX [Concomitant]
     Dosage: 4000 IU (INTERNATIONAL UNIT)
     Route: 065
  4. BACTRIM [Concomitant]
     Dosage: 2 TABLET
     Route: 065
  5. PANTOPRAZOLE [Concomitant]
     Dosage: 20 MILLIGRAM
     Route: 065
  6. REVLIMID [Suspect]
     Dosage: 5 MILLIGRAM
     Route: 048
     Dates: start: 20110124
  7. REVLIMID [Suspect]
     Dosage: 2.5 MILLIGRAM
     Route: 048
     Dates: start: 20110205, end: 20110213
  8. REVLIMID [Suspect]
     Dosage: 5 MILLIGRAM
     Route: 048
     Dates: end: 20110304

REACTIONS (1)
  - ACUTE MYELOID LEUKAEMIA [None]
